FAERS Safety Report 6727882-2 (Version None)
Quarter: 2010Q2

REPORT INFORMATION
  Report Type: 
  Country: None (occurrence: None)
  Receive Date: 20100512
  Receipt Date: 20100205
  Transmission Date: 20101027
  Serious: No
  Sender: FDA-Public Use
  Company Number: 1000011706

PATIENT
  Age: 47 Year
  Sex: Female

DRUGS (9)
  1. SAVELLA [Suspect]
     Indication: FIBROMYALGIA
     Dosage: SEE IMAGE
     Route: 048
     Dates: start: 20100125, end: 20100127
  2. SAVELLA [Suspect]
     Indication: FIBROMYALGIA
     Dosage: SEE IMAGE
     Route: 048
     Dates: start: 20100128, end: 20100130
  3. SAVELLA [Suspect]
     Indication: FIBROMYALGIA
     Dosage: SEE IMAGE
     Route: 048
     Dates: start: 20100131, end: 20100202
  4. SAVELLA [Suspect]
     Indication: FIBROMYALGIA
     Dosage: SEE IMAGE
     Route: 048
     Dates: start: 20100203
  5. LYRICA (75 MILLIGRAM) [Concomitant]
  6. PORCINE THYROID [Concomitant]
  7. PROGESTERONE [Concomitant]
  8. TESTOSTERONE [Concomitant]
  9. SUPPLEMENTS (NOS) [Concomitant]

REACTIONS (2)
  - HEART RATE INCREASED [None]
  - PALPITATIONS [None]
